FAERS Safety Report 6934426-9 (Version None)
Quarter: 2010Q3

REPORT INFORMATION
  Report Type: 
  Country: None (occurrence: None)
  Receive Date: 20100820
  Receipt Date: 20100811
  Transmission Date: 20110219
  Serious: Yes (Other)
  Sender: FDA-Public Use
  Company Number: B0669354A

PATIENT
  Age: 25 Year
  Sex: Female

DRUGS (3)
  1. ALBUTEROL SULFATE AUTOHALER [Suspect]
     Indication: ASTHMA
     Route: 055
  2. ERGOCALCIFEROL [Suspect]
     Route: 030
     Dates: start: 20100713
  3. DICLOFENAC SODIUM [Concomitant]
     Indication: ABDOMINAL PAIN
     Dosage: 50MG PER DAY
     Dates: start: 20100713, end: 20100718

REACTIONS (1)
  - MELAENA [None]
